FAERS Safety Report 10359924 (Version 1)
Quarter: 2014Q3

REPORT INFORMATION
  Report Type: Spontaneous
  Country: US (occurrence: None)
  Receive Date: 20140801
  Receipt Date: 20140801
  Transmission Date: 20150326
  Serious: Yes (Death)
  Sender: FDA-Public Use
  Company Number: None

PATIENT
  Age: 62 Year
  Sex: Female
  Weight: 59 kg

DRUGS (15)
  1. AZATHIOPRINE ? [Concomitant]
  2. DIGOXIN. [Concomitant]
     Active Substance: DIGOXIN
  3. FENTANYL. [Concomitant]
     Active Substance: FENTANYL
  4. IVIG [Concomitant]
     Active Substance: HUMAN IMMUNOGLOBULIN G
  5. SEROQUEL [Concomitant]
     Active Substance: QUETIAPINE FUMARATE
  6. DULOXETINE [Concomitant]
     Active Substance: DULOXETINE
  7. AMITIZA [Concomitant]
     Active Substance: LUBIPROSTONE
  8. LEVOTHYROXINE [Concomitant]
     Active Substance: LEVOTHYROXINE
  9. OMEPRAZOLE. [Concomitant]
     Active Substance: OMEPRAZOLE
  10. LOVENOX [Suspect]
     Active Substance: ENOXAPARIN SODIUM
     Indication: ANTICOAGULANT THERAPY
     Route: 058
     Dates: start: 20140726, end: 20140728
  11. AMIODARON [Concomitant]
     Active Substance: AMIODARONE
  12. METOPROLOL TARTRATE. [Concomitant]
     Active Substance: METOPROLOL TARTRATE
  13. BUPROPRION [Concomitant]
     Active Substance: BUPROPION
  14. PREDNISONE. [Concomitant]
     Active Substance: PREDNISONE
  15. MESTINON [Concomitant]
     Active Substance: PYRIDOSTIGMINE BROMIDE

REACTIONS (1)
  - Haemorrhage intracranial [None]

NARRATIVE: CASE EVENT DATE: 20140728
